FAERS Safety Report 6657258-8 (Version None)
Quarter: 2010Q1

REPORT INFORMATION
  Report Type: 
  Country: None (occurrence: None)
  Receive Date: 20100318
  Receipt Date: 20091209
  Transmission Date: 20100710
  Serious: Yes (Other)
  Sender: FDA-Public Use
  Company Number: JHP200900466

PATIENT
  Age: 48 Year
  Sex: Male

DRUGS (1)
  1. KETALAR [Suspect]
     Indication: GENERAL ANAESTHESIA
     Dosage: 30 MG, INTRAVENOUS
     Route: 042
     Dates: start: 20091201, end: 20091201

REACTIONS (1)
  - BLOOD PRESSURE INCREASED [None]
